FAERS Safety Report 5872946-9 (Version None)
Quarter: 2008Q3

REPORT INFORMATION
  Report Type: 
  Country: None (occurrence: None)
  Receive Date: 20080905
  Receipt Date: 20080825
  Transmission Date: 20090109
  Serious: Yes (Other)
  Sender: FDA-Public Use
  Company Number: US-PFIZER INC-2008071228

PATIENT
  Sex: Male

DRUGS (5)
  1. LYRICA [Suspect]
     Route: 048
  2. PROMETHAZINE [Concomitant]
  3. ATIVAN [Concomitant]
  4. CLONIDINE [Concomitant]
  5. GRANISETRON HCL [Concomitant]

REACTIONS (7)
  - DEVICE OCCLUSION [None]
  - DRUG INEFFECTIVE [None]
  - GASTROINTESTINAL DISORDER [None]
  - GASTROINTESTINAL INFECTION [None]
  - INTESTINAL OBSTRUCTION [None]
  - MALABSORPTION [None]
  - NEOPLASM MALIGNANT [None]
